FAERS Safety Report 13871337 (Version 2)
Quarter: 2017Q3

REPORT INFORMATION
  Report Type: Report from Study
  Country: US (occurrence: US)
  Receive Date: 20170816
  Receipt Date: 20170829
  Transmission Date: 20171127
  Serious: Yes (Other)
  Sender: FDA-Public Use
  Company Number: US-BAYER-2017-151858

PATIENT
  Age: 68 Year
  Sex: Male

DRUGS (2)
  1. STIVARGA [Suspect]
     Active Substance: REGORAFENIB
     Indication: GASTROINTESTINAL CARCINOMA
     Dosage: 160 MG, QD (FOR 21 DAYS THEN OFF FOR 7 DAYS)
     Route: 048
     Dates: start: 20170609, end: 20170724
  2. STIVARGA [Suspect]
     Active Substance: REGORAFENIB
     Indication: RECTAL CANCER

REACTIONS (5)
  - Haemorrhoids [None]
  - Diarrhoea [None]
  - Drug intolerance [None]
  - Micturition urgency [None]
  - Peripheral swelling [None]

NARRATIVE: CASE EVENT DATE: 2017
